FAERS Safety Report 8517626-6 (Version None)
Quarter: 2012Q3

REPORT INFORMATION
  Report Type: 
  Country: None (occurrence: None)
  Receive Date: 20120718
  Receipt Date: 20120712
  Transmission Date: 20120928
  Serious: Yes (Other)
  Sender: FDA-Public Use
  Company Number: US-PFIZER INC-2012168671

PATIENT
  Sex: Female

DRUGS (5)
  1. PREMARIN [Suspect]
     Indication: HORMONE REPLACEMENT THERAPY
     Dosage: 1.25 MG, DAILY
     Route: 048
     Dates: start: 19820101
  2. PREMARIN [Suspect]
     Indication: HORMONE REPLACEMENT THERAPY
     Dosage: UNK, MONTHLY
     Dates: start: 19820101, end: 20120101
  3. VITAMIN D [Concomitant]
     Dosage: UNK
  4. VITAMIN B-12 [Concomitant]
     Dosage: UNK
  5. PREMARIN [Suspect]
     Dosage: 0.625 MG, DAILY
     Route: 048
     Dates: start: 20120709

REACTIONS (1)
  - THYROID DISORDER [None]
